FAERS Safety Report 9478617 (Version 1)
Quarter: 2013Q3

REPORT INFORMATION
  Report Type: Spontaneous
  Country: US (occurrence: US)
  Receive Date: 20130827
  Receipt Date: 20130827
  Transmission Date: 20140515
  Serious: Yes (Other)
  Sender: FDA-Public Use
  Company Number: US-TEVA-428499USA

PATIENT
  Sex: Female

DRUGS (2)
  1. TREANDA [Suspect]
  2. ALLOPURINOL [Suspect]

REACTIONS (1)
  - Stevens-Johnson syndrome [Unknown]
